FAERS Safety Report 11991847 (Version 1)
Quarter: 2016Q1

REPORT INFORMATION
  Report Type: Spontaneous
  Country: US (occurrence: US)
  Receive Date: 20160203
  Receipt Date: 20160203
  Transmission Date: 20160526
  Serious: No
  Sender: FDA-Public Use
  Company Number: US-JNJFOC-20151207946

PATIENT
  Age: 70 Year
  Sex: Female
  Weight: 63.5 kg

DRUGS (3)
  1. ZYRTEC [Suspect]
     Active Substance: CETIRIZINE HYDROCHLORIDE
     Indication: URTICARIA
     Dosage: 1 TABLET, DAILY
     Route: 048
     Dates: start: 20151203
  2. ZYRTEC [Suspect]
     Active Substance: CETIRIZINE HYDROCHLORIDE
     Indication: RASH
     Dosage: 1 TABLET, DAILY
     Route: 048
     Dates: start: 20151203
  3. ZYRTEC [Suspect]
     Active Substance: CETIRIZINE HYDROCHLORIDE
     Indication: MULTIPLE ALLERGIES
     Dosage: 1 TABLET, DAILY
     Route: 048
     Dates: start: 20151203

REACTIONS (3)
  - Off label use [Unknown]
  - Product use issue [Unknown]
  - Therapeutic response unexpected [Unknown]
